FAERS Safety Report 9214830 (Version 2)
Quarter: 2013Q3

REPORT INFORMATION
  Report Type: Report from Study
  Country: US (occurrence: US)
  Receive Date: 20130405
  Receipt Date: 20130705
  Transmission Date: 20140515
  Serious: Yes (Hospitalization)
  Sender: FDA-Public Use
  Company Number: US-GLAXOSMITHKLINE-A1018600A

PATIENT
  Age: 78 Year
  Sex: Male
  Weight: 63 kg

DRUGS (2)
  1. OFATUMUMAB [Suspect]
     Indication: CHRONIC LYMPHOCYTIC LEUKAEMIA
     Dosage: 2000MG MONTHLY
     Route: 042
     Dates: start: 20130228
  2. LENALIDOMIDE [Suspect]
     Indication: CHRONIC LYMPHOCYTIC LEUKAEMIA
     Dosage: 5MG PER DAY
     Route: 048
     Dates: start: 20120719

REACTIONS (2)
  - Small intestinal obstruction [Unknown]
  - Umbilical hernia, obstructive [Unknown]
